FAERS Safety Report 5118052-2 (Version None)
Quarter: 2006Q3

REPORT INFORMATION
  Report Type: 
  Country: None (occurrence: None)
  Receive Date: 20060929
  Receipt Date: 20060926
  Transmission Date: 20061208
  Serious: Yes (Other)
  Sender: FDA-Public Use
  Company Number: BE-ROXANE LABORATORIES, INC-2006-DE-05135GD

PATIENT
  Sex: Male

DRUGS (13)
  1. MORPHINE [Suspect]
     Indication: POSTOPERATIVE ANALGESIA
     Route: 030
  2. MORPHINE [Suspect]
     Indication: PREMEDICATION
     Route: 042
  3. MORPHINE [Suspect]
     Dosage: PCA WITH 1.5 MG BOLUS, LOCKOUT INTERVAL 5 MIN
     Route: 042
  4. MIDAZOLAM HCL [Concomitant]
     Indication: PREMEDICATION
     Route: 030
  5. LIDOCAINE [Concomitant]
     Indication: ANAESTHESIA
     Dosage: 3 ML OF 1% LIDOCAINE
  6. PROPOFOL [Concomitant]
     Indication: INDUCTION OF ANAESTHESIA
  7. PROPOFOL [Concomitant]
     Dosage: CONTINUOUS INFUSION OF 1 MG/KG/H
  8. REMIFENTANIL [Concomitant]
     Indication: INDUCTION AND MAINTENANCE OF ANAESTHESIA
     Route: 042
  9. REMIFENTANIL [Concomitant]
     Dosage: CONTINUOUS INFUSION OF 0.15 MCG/KG/MIN, DECREASED IN INCREMENTS OF 0.025 MCG/KG/MIN
     Route: 042
  10. ROCURONIUM BROMIDE [Concomitant]
     Indication: INTUBATION
  11. POTASSIUM-MAGNESIUM CARDIOPLEGIC SOLUTION [Concomitant]
     Indication: CARDIOVASCULAR EVENT PROPHYLAXIS
  12. OXYGEN [Concomitant]
     Indication: OXYGEN SATURATION
     Dosage: FLOW BETWEEN 3 AND 10 L/MIN
     Route: 055
  13. OXYGEN [Concomitant]
     Dosage: {4 L/MIN
     Route: 045

REACTIONS (1)
  - MYOCARDIAL ISCHAEMIA [None]
